FAERS Safety Report 16307271 (Version 1)
Quarter: 2019Q2

REPORT INFORMATION
  Report Type: Spontaneous
  Country: DE (occurrence: DE)
  Receive Date: 20190514
  Receipt Date: 20190514
  Transmission Date: 20190711
  Serious: Yes (Death, Other)
  Sender: FDA-Public Use
  Company Number: DE-ROCHE-2315037

PATIENT
  Age: 54 Year
  Sex: Female

DRUGS (8)
  1. DIAZEPAM. [Suspect]
     Active Substance: DIAZEPAM
     Indication: CHOKING SENSATION
  2. DIAZEPAM. [Suspect]
     Active Substance: DIAZEPAM
     Indication: INSOMNIA
  3. BRONCHOPARAT [Suspect]
     Active Substance: THEOPHYLLINE ANHYDROUS
     Indication: CHOKING SENSATION
  4. DIAZEPAM. [Suspect]
     Active Substance: DIAZEPAM
     Indication: FEAR OF DEATH
     Route: 065
     Dates: start: 20181231
  5. BRONCHOPARAT [Suspect]
     Active Substance: THEOPHYLLINE ANHYDROUS
     Indication: INSOMNIA
     Route: 065
  6. BRONCHOPARAT [Suspect]
     Active Substance: THEOPHYLLINE ANHYDROUS
     Indication: FEAR OF DEATH
  7. DIAZEPAM. [Suspect]
     Active Substance: DIAZEPAM
     Indication: DYSPNOEA
     Route: 065
  8. BRONCHOPARAT [Suspect]
     Active Substance: THEOPHYLLINE ANHYDROUS
     Indication: DYSPNOEA
     Route: 065
     Dates: start: 20181231

REACTIONS (6)
  - Somnolence [Unknown]
  - Expired product administered [Unknown]
  - Multiple organ dysfunction syndrome [Fatal]
  - Exaggerated startle response [Unknown]
  - Confusional state [Unknown]
  - Dysarthria [Unknown]
